FAERS Safety Report 7861651-5 (Version None)
Quarter: 2011Q4

REPORT INFORMATION
  Report Type: 
  Country: None (occurrence: None)
  Receive Date: 20111027
  Receipt Date: 20111017
  Transmission Date: 20120403
  Serious: Yes (Other)
  Sender: FDA-Public Use
  Company Number: FI-NOVOPROD-337643

PATIENT

DRUGS (8)
  1. BYETTA [Suspect]
     Indication: TYPE 2 DIABETES MELLITUS
     Dosage: 5 MG, BID
     Route: 058
     Dates: start: 20110819, end: 20110821
  2. AMITRID [Concomitant]
     Dosage: 1X1, QD
     Route: 048
  3. PULMICORT [Concomitant]
     Dosage: 2 X200
     Route: 055
  4. VICTOZA [Suspect]
     Indication: TYPE 2 DIABETES MELLITUS
     Dosage: 0.6 MG, QD
     Route: 058
     Dates: start: 20110701, end: 20110817
  5. PANTOPRAZOLE [Concomitant]
     Dosage: 1 X1 QD
     Route: 048
  6. ORLOC [Concomitant]
     Dosage: 1X1, QD
     Route: 048
  7. POTASSIUM CHLORIDE [Concomitant]
     Dosage: 5X1, QD
     Route: 048
  8. ESTROGEL [Concomitant]
     Dosage: UNK

REACTIONS (3)
  - GASTRITIS [None]
  - PYREXIA [None]
  - SKIN DISCOLOURATION [None]
